FAERS Safety Report 10084133 (Version 1)
Quarter: 2014Q2

REPORT INFORMATION
  Report Type: Spontaneous
  Country: US (occurrence: US)
  Receive Date: 20140417
  Receipt Date: 20140417
  Transmission Date: 20141212
  Serious: Yes (Other)
  Sender: FDA-Public Use
  Company Number: US-ALLERGAN-1407389US

PATIENT
  Age: 70 Year
  Sex: Female

DRUGS (1)
  1. LATISSE 0.03% [Suspect]
     Indication: PRODUCT USED FOR UNKNOWN INDICATION
     Dosage: UNK
     Dates: start: 201401

REACTIONS (4)
  - Cystoid macular oedema [Recovered/Resolved]
  - Visual acuity reduced [Recovering/Resolving]
  - Intraocular pressure decreased [Recovering/Resolving]
  - Vision blurred [Not Recovered/Not Resolved]
